FAERS Safety Report 24965715 (Version 4)
Quarter: 2025Q2

REPORT INFORMATION
  Report Type: Spontaneous
  Country: JP (occurrence: JP)
  Receive Date: 20250213
  Receipt Date: 20250625
  Transmission Date: 20250716
  Serious: Yes (Hospitalization)
  Sender: BAYER HEALTHCARE PHARMACEUTICALS INC.
  Company Number: JP-BAYER-2025A021210

PATIENT
  Age: 65 Year
  Sex: Male

DRUGS (10)
  1. STIVARGA [Suspect]
     Active Substance: REGORAFENIB MONOHYDRATE
     Indication: Colorectal cancer recurrent
     Dosage: DAILY DOSE 120 MG
     Dates: start: 20250120, end: 20250207
  2. ROSUVASTATIN [Concomitant]
     Active Substance: ROSUVASTATIN
     Indication: Dyslipidaemia
     Dosage: 2.5 MG DAILY
     Dates: start: 20240508, end: 20250209
  3. MAGNESIUM OXIDE [Concomitant]
     Active Substance: MAGNESIUM OXIDE
     Indication: Constipation
     Dates: start: 20250203
  4. LANSOPRAZOLE [Concomitant]
     Active Substance: LANSOPRAZOLE
     Dates: start: 20240508
  5. ASPIRIN [Concomitant]
     Active Substance: ASPIRIN
     Indication: Cerebellar infarction
     Dosage: 0.1 G DAILY
     Dates: start: 20240503
  6. VITAMINS [Concomitant]
     Active Substance: VITAMINS
     Indication: Feeding disorder
     Dosage: 2 G DAILY
     Dates: start: 20241017
  7. TRAZODONE HYDROCHLORIDE [Concomitant]
     Active Substance: TRAZODONE HYDROCHLORIDE
     Indication: Insomnia
     Dates: start: 20240826
  8. FLUNITRAZEPAM [Concomitant]
     Active Substance: FLUNITRAZEPAM
     Indication: Insomnia
     Dates: start: 202411
  9. SODIUM FERROUS CITRATE [Concomitant]
     Active Substance: SODIUM FERROUS CITRATE
     Indication: Anaemia
     Dosage: 50 MG DAILY
     Dates: start: 20240516
  10. SODIUM FERROUS CITRATE [Concomitant]
     Active Substance: SODIUM FERROUS CITRATE
     Indication: Anaemia

REACTIONS (7)
  - Rhabdomyolysis [Recovering/Resolving]
  - Drug-induced liver injury [Recovering/Resolving]
  - Dehydration [Recovered/Resolved]
  - Pyrexia [Recovered/Resolved]
  - Muscular weakness [None]
  - Asthenia [None]
  - Blood creatine phosphokinase increased [None]

NARRATIVE: CASE EVENT DATE: 20250207
